FAERS Safety Report 21297074 (Version 1)
Quarter: 2022Q3

REPORT INFORMATION
  Report Type: Spontaneous
  Country: BE (occurrence: BE)
  Receive Date: 20220906
  Receipt Date: 20220906
  Transmission Date: 20221026
  Serious: Yes (Life-Threatening, Hospitalization)
  Sender: FDA-Public Use
  Company Number: BE-MYLANLABS-2022M1089987

PATIENT
  Age: 40 Year
  Sex: Male

DRUGS (9)
  1. ACETAMINOPHEN [Suspect]
     Active Substance: ACETAMINOPHEN
     Indication: Product used for unknown indication
     Dosage: 10 GRAM
     Route: 065
  2. QUETIAPINE [Interacting]
     Active Substance: QUETIAPINE
     Indication: Mental disorder
     Dosage: UNK
     Route: 065
  3. VENLAFAXINE [Interacting]
     Active Substance: VENLAFAXINE HYDROCHLORIDE
     Indication: Mental disorder
     Dosage: UNK
     Route: 065
  4. ALPRAZOLAM [Interacting]
     Active Substance: ALPRAZOLAM
     Indication: Mental disorder
     Dosage: UNK
     Route: 065
  5. GENVOYA [Interacting]
     Active Substance: COBICISTAT\ELVITEGRAVIR\EMTRICITABINE\TENOFOVIR ALAFENAMIDE FUMARATE
     Indication: HIV infection
     Dosage: THE MAN HAD VOLUNTARILY TAKEN 60 TABLETS
     Route: 048
  6. VALPROIC ACID [Concomitant]
     Active Substance: VALPROIC ACID
     Indication: Mental disorder
     Dosage: UNK
     Route: 065
  7. TRAZODONE [Concomitant]
     Active Substance: TRAZODONE HYDROCHLORIDE
     Indication: Mental disorder
     Dosage: UNK
     Route: 065
  8. LORAZEPAM [Concomitant]
     Active Substance: LORAZEPAM
     Indication: Mental disorder
     Dosage: UNK
     Route: 065
  9. OLANZAPINE [Concomitant]
     Active Substance: OLANZAPINE
     Indication: Mental disorder
     Dosage: UNK
     Route: 065

REACTIONS (4)
  - Intentional product misuse [Recovering/Resolving]
  - Suicide attempt [Recovering/Resolving]
  - Intentional overdose [Recovering/Resolving]
  - Drug interaction [Unknown]
